FAERS Safety Report 17270074 (Version 2)
Quarter: 2021Q1

REPORT INFORMATION
  Report Type: Spontaneous
  Country: US (occurrence: US)
  Receive Date: 20200114
  Receipt Date: 20210115
  Transmission Date: 20210419
  Serious: No
  Sender: FDA-Public Use
  Company Number: US-PARI RESPIRATORY EQUIPMENT, INC.-2019PAR00122

PATIENT
  Sex: Female
  Weight: 6.8 kg

DRUGS (8)
  1. KITABIS PAK [Suspect]
     Active Substance: TOBRAMYCIN
     Indication: CYSTIC FIBROSIS
     Dosage: 300 MG, 2X/DAY ROTATE 21 DAYS ON AND 21 DAYS OFF
  2. CAYSTON [Suspect]
     Active Substance: AZTREONAM
  3. KITABIS PAK [Suspect]
     Active Substance: TOBRAMYCIN
     Indication: RESPIRATORY DISORDER NEONATAL
  4. KITABIS PAK [Suspect]
     Active Substance: TOBRAMYCIN
     Indication: GASTROINTESTINAL DISORDER
     Dosage: 300 MG, 2X/DAY (ROTATE 28 DAYS ON A)
  5. ORKAMBI [Concomitant]
     Active Substance: IVACAFTOR\LUMACAFTOR
  6. PULMOZYME [Concomitant]
     Active Substance: DORNASE ALFA
  7. CAYSTON [Suspect]
     Active Substance: AZTREONAM
  8. TOBRAMYCIN. [Concomitant]
     Active Substance: TOBRAMYCIN

REACTIONS (3)
  - Upper respiratory tract infection [Unknown]
  - Condition aggravated [Unknown]
  - Product dispensing issue [Unknown]

NARRATIVE: CASE EVENT DATE: 2019
